FAERS Safety Report 13880655 (Version 4)
Quarter: 2018Q3

REPORT INFORMATION
  Report Type: Spontaneous
  Country: JP (occurrence: JP)
  Receive Date: 20170818
  Receipt Date: 20180914
  Transmission Date: 20181010
  Serious: Yes (Death, Life-Threatening, Hospitalization, Other)
  Sender: FDA-Public Use
  Company Number: JP-009507513-1708JPN002071J

PATIENT
  Age: 84 Year
  Sex: Male
  Weight: 50 kg

DRUGS (8)
  1. SOL?MELCORT [Concomitant]
     Active Substance: METHYLPREDNISOLONE SODIUM SUCCINATE
     Indication: INTERSTITIAL LUNG DISEASE
     Dosage: 125 G, QD
     Route: 051
     Dates: start: 20170810, end: 20170811
  2. REBAMIPIDE [Concomitant]
     Active Substance: REBAMIPIDE
     Indication: ABDOMINAL PAIN UPPER
     Dosage: 1 DF, TID
     Route: 048
     Dates: start: 20170711, end: 20170812
  3. SOL?MELCORT [Concomitant]
     Active Substance: METHYLPREDNISOLONE SODIUM SUCCINATE
     Dosage: 500 G, BID
     Route: 051
     Dates: start: 20170812, end: 20170812
  4. LOBU [Concomitant]
     Active Substance: LOBUCAVIR
     Indication: BACK PAIN
     Dosage: 1 DF, BID
     Route: 048
     Dates: start: 20170711, end: 20170812
  5. KEYTRUDA [Suspect]
     Active Substance: PEMBROLIZUMAB
     Indication: LUNG ADENOCARCINOMA
     Dosage: 200 MG, Q3W
     Route: 041
     Dates: start: 20170807, end: 20170807
  6. NEXIUM [Concomitant]
     Active Substance: ESOMEPRAZOLE MAGNESIUM
     Indication: ABDOMINAL PAIN UPPER
     Dosage: 1 DF, QD
     Route: 048
     Dates: start: 20170711, end: 20170812
  7. BACTRAMIN [Concomitant]
     Active Substance: SULFAMETHOXAZOLE\TRIMETHOPRIM
     Indication: ANTIFUNGAL PROPHYLAXIS
     Dosage: 0.5 DF, QD
     Route: 048
     Dates: start: 20170711, end: 20170812
  8. PREDNISOLONE. [Concomitant]
     Active Substance: PREDNISOLONE
     Indication: ASTHMA
     Dosage: 2 DF, QD
     Route: 048
     Dates: start: 20170711, end: 20170812

REACTIONS (3)
  - Respiratory failure [Fatal]
  - Interstitial lung disease [Unknown]
  - Pulse waveform abnormal [Unknown]

NARRATIVE: CASE EVENT DATE: 20170812
